FAERS Safety Report 9528427 (Version 4)
Quarter: 2013Q4

REPORT INFORMATION
  Report Type: Not Available
  Country: IT (occurrence: IT)
  Receive Date: 20130917
  Receipt Date: 20131220
  Transmission Date: 20140711
  Serious: Yes (Death, Hospitalization)
  Sender: FDA-Public Use
  Company Number: IT-ASTELLAS-2013EU006957

PATIENT
  Age: 59 Year
  Sex: Male

DRUGS (7)
  1. MYCAMINE [Suspect]
     Indication: CANDIDA SEPSIS
     Dosage: 100 MG, UNKNOWN/D
     Route: 042
     Dates: start: 20130801, end: 20130805
  2. SUCRALFATE [Concomitant]
     Dosage: 2 G, UNKNOWN/D
     Route: 065
  3. SEROQUEL [Concomitant]
     Dosage: UNK
     Route: 065
  4. CONGESCOR [Concomitant]
     Dosage: UNK
     Route: 065
  5. DINTOINA [Concomitant]
     Indication: CONVULSION
     Dosage: UNK
     Route: 065
  6. KCL-RETARD [Concomitant]
     Dosage: UNK
     Route: 065
  7. LANSOX [Concomitant]
     Dosage: UNK
     Route: 065

REACTIONS (1)
  - Ocular icterus [Fatal]
